FAERS Safety Report 20115305 (Version 1)
Quarter: 2021Q4

REPORT INFORMATION
  Report Type: Spontaneous
  Country: DE (occurrence: DE)
  Receive Date: 20211125
  Receipt Date: 20211125
  Transmission Date: 20220303
  Serious: Yes (Hospitalization, Other)
  Sender: FDA-Public Use
  Company Number: DE-BoehringerIngelheim-2020-BI-065342

PATIENT
  Age: 69 Year
  Sex: Male
  Weight: 71 kg

DRUGS (5)
  1. DOCETAXEL [Suspect]
     Active Substance: DOCETAXEL
     Indication: Lung adenocarcinoma
     Dosage: 75 MILLIGRAM/SQ. METER, ONCE A DAY(75 MG/M2 BODY SURFACE AREA FOA- LIQUID)
     Route: 065
     Dates: start: 20201027
  2. NINTEDANIB [Suspect]
     Active Substance: NINTEDANIB
     Indication: Lung adenocarcinoma
     Dosage: 200 MILLIGRAM, TWO TIMES A DAY (200 MG BID)
     Route: 065
     Dates: start: 20201028, end: 20210121
  3. CIPROFLOXACIN [Concomitant]
     Active Substance: CIPROFLOXACIN
     Indication: Product used for unknown indication
     Dosage: UNK
     Route: 065
  4. Kalinor [Concomitant]
     Indication: Prophylaxis
     Dosage: 600 MILLIGRAM, ONCE A DAY
     Route: 065
     Dates: start: 20201223, end: 20201229
  5. PANTOPRAZOLE [Concomitant]
     Active Substance: PANTOPRAZOLE
     Indication: Product used for unknown indication
     Dosage: UNK(OCCASIONALLY)
     Route: 065

REACTIONS (9)
  - Colitis [Not Recovered/Not Resolved]
  - Diverticulitis [Recovered/Resolved]
  - Neutrophil count decreased [Recovered/Resolved]
  - Diarrhoea [Recovered/Resolved]
  - Blood creatinine increased [Recovered/Resolved]
  - Abdominal pain [Recovered/Resolved]
  - C-reactive protein increased [Recovered/Resolved]
  - Pruritus [Recovered/Resolved]
  - Nausea [Recovered/Resolved]

NARRATIVE: CASE EVENT DATE: 20201125
